FAERS Safety Report 7527854-4 (Version None)
Quarter: 2011Q2

REPORT INFORMATION
  Report Type: 
  Country: None (occurrence: None)
  Receive Date: 20110531
  Receipt Date: 20110516
  Transmission Date: 20111010
  Serious: Yes (Death)
  Sender: FDA-Public Use
  Company Number: US-2011-10307

PATIENT

DRUGS (9)
  1. CYCLOSPORINE [Concomitant]
  2. GRANULOCYTE COLONY STIUMLATING FACTOR [Concomitant]
  3. ACYCLOVIR [Concomitant]
  4. SULFAMETHOXAZOLE AND TRIMETHOPRIM [Concomitant]
  5. FLUCONAZOLE [Concomitant]
  6. BUSULFEX [Suspect]
     Indication: HAEMATOLOGICAL MALIGNANCY
     Dosage: 0.8 MG/KG, Q12HR, IV DRIP
     Route: 041
  7. FLUDARA [Suspect]
     Indication: HAEMATOLOGICAL MALIGNANCY
     Dosage: 30 MG/M2, DAILY DOSE, IV DRIP
     Route: 041
  8. POLYMYXIN B SULFATE (POLYMYXIN B SULFATE) [Concomitant]
  9. METHOTREXATE [Concomitant]

REACTIONS (2)
  - GRAFT VERSUS HOST DISEASE [None]
  - THROMBOTIC MICROANGIOPATHY [None]
